FAERS Safety Report 7955082-7 (Version None)
Quarter: 2011Q4

REPORT INFORMATION
  Report Type: 
  Country: None (occurrence: None)
  Receive Date: 20111202
  Receipt Date: 20111124
  Transmission Date: 20120403
  Serious: Yes (Death)
  Sender: FDA-Public Use
  Company Number: BR-BAYER-2011-015861

PATIENT
  Age: 19 Year
  Sex: Female

DRUGS (1)
  1. BETASERON [Suspect]
     Indication: MULTIPLE SCLEROSIS
     Dosage: UNK
     Route: 058
     Dates: start: 20101201

REACTIONS (4)
  - MALAISE [None]
  - SPEECH DISORDER [None]
  - DEATH [None]
  - HEADACHE [None]
